FAERS Safety Report 9019388 (Version 2)
Quarter: 2013Q1

REPORT INFORMATION
  Report Type: Spontaneous
  Country: BR (occurrence: BR)
  Receive Date: 20130118
  Receipt Date: 20130128
  Transmission Date: 20140127
  Serious: Yes (Hospitalization)
  Sender: FDA-Public Use
  Company Number: BR-ASTRAZENECA-2013SE02128

PATIENT
  Age: 74 Year
  Sex: Male
  Weight: 91 kg

DRUGS (7)
  1. NEXIUM [Suspect]
     Indication: ABDOMINAL DISCOMFORT
     Route: 048
     Dates: start: 2008, end: 201210
  2. NEXIUM [Suspect]
     Indication: ABDOMINAL DISCOMFORT
     Route: 048
     Dates: start: 201210
  3. CRESTOR [Suspect]
     Indication: BLOOD CHOLESTEROL INCREASED
     Route: 048
     Dates: start: 2008
  4. ASPIRIN [Suspect]
     Route: 048
     Dates: start: 2008
  5. PARADAXA [Suspect]
     Indication: COAGULOPATHY
     Route: 048
     Dates: start: 2008
  6. GALVUS [Suspect]
     Indication: ARRHYTHMIA
     Dosage: 50/500 MG BID
     Route: 048
     Dates: start: 2008
  7. BENICAR [Suspect]
     Indication: HYPERTENSION
     Route: 048
     Dates: start: 2008

REACTIONS (5)
  - Arrhythmia [Recovered/Resolved]
  - Increased upper airway secretion [Unknown]
  - Blood cholesterol increased [Unknown]
  - Nausea [Unknown]
  - Intentional drug misuse [Unknown]
